FAERS Safety Report 22588798 (Version 4)
Quarter: 2024Q1

REPORT INFORMATION
  Report Type: Spontaneous
  Country: JP (occurrence: JP)
  Receive Date: 20230612
  Receipt Date: 20240119
  Transmission Date: 20240410
  Serious: Yes (Hospitalization, Disabling, Other)
  Sender: FDA-Public Use
  Company Number: None

PATIENT

DRUGS (7)
  1. LAMICTAL [Suspect]
     Active Substance: LAMOTRIGINE
     Indication: Epilepsy
     Dosage: 25 MG, 1D
     Route: 048
     Dates: start: 20230309, end: 20230318
  2. LAMICTAL [Suspect]
     Active Substance: LAMOTRIGINE
     Indication: Affective disorder
     Dosage: 50 MG, 1D
     Route: 048
     Dates: start: 20230319, end: 20230405
  3. LAMICTAL [Suspect]
     Active Substance: LAMOTRIGINE
     Indication: Anxiety disorder
     Dosage: 75 MG, 1D
     Route: 048
     Dates: start: 20230406, end: 20230416
  4. LAMICTAL [Suspect]
     Active Substance: LAMOTRIGINE
     Dosage: 100 MG, BID
     Route: 048
     Dates: start: 20230417, end: 20230427
  5. LEVETIRACETAM [Concomitant]
     Active Substance: LEVETIRACETAM
     Indication: Epilepsy
     Dosage: 1000 MG
     Route: 048
     Dates: start: 20230327, end: 20230403
  6. QUETIAPINE FUMARATE [Concomitant]
     Active Substance: QUETIAPINE FUMARATE
     Indication: Anxiety
     Dosage: 12.5 MG/DOSE,  AS NEEDED
     Route: 048
     Dates: start: 202301, end: 20230429
  7. QUETIAPINE FUMARATE [Concomitant]
     Active Substance: QUETIAPINE FUMARATE
     Indication: Insomnia
     Dosage: 6.25 MG, AS NEEDED
     Route: 048
     Dates: start: 20230430, end: 20230430

REACTIONS (17)
  - Drug reaction with eosinophilia and systemic symptoms [Unknown]
  - Photosensitivity reaction [Recovered/Resolved]
  - Eczema [Recovered/Resolved]
  - Blister [Recovered/Resolved]
  - Parosmia [Not Recovered/Not Resolved]
  - Hyperacusis [Not Recovered/Not Resolved]
  - Hyperaesthesia [Not Recovered/Not Resolved]
  - Hospitalisation [Unknown]
  - Rash [Recovered/Resolved]
  - Drug eruption [Recovered/Resolved]
  - Palpitations [Recovered/Resolved]
  - Body temperature increased [Recovered/Resolved]
  - Feeling hot [Recovered/Resolved]
  - Peripheral swelling [Recovered/Resolved]
  - Muscular weakness [Recovering/Resolving]
  - Drug hypersensitivity [Unknown]
  - Drug titration error [Unknown]

NARRATIVE: CASE EVENT DATE: 20230428
